FAERS Safety Report 22150892 (Version 1)
Quarter: 2023Q1

REPORT INFORMATION
  Report Type: Spontaneous
  Country: US (occurrence: US)
  Receive Date: 20230329
  Receipt Date: 20230329
  Transmission Date: 20230418
  Serious: Yes (Hospitalization)
  Sender: FDA-Public Use
  Company Number: US-MYLANLABS-2023M1032705

PATIENT
  Age: 37 Year
  Sex: Male

DRUGS (3)
  1. BACLOFEN [Suspect]
     Active Substance: BACLOFEN
     Indication: Muscle spasticity
     Dosage: 40 ML BACLOFEN THERAPY SYSTEM REFILLED WITH INTRATHECAL BACLOFEN APPROXIMATELY?..
     Route: 037
  2. BACLOFEN [Suspect]
     Active Substance: BACLOFEN
     Dosage: 940 MICROGRAM, QD (CONTINUOUS RATE)
     Route: 037
  3. CLONAZEPAM [Suspect]
     Active Substance: CLONAZEPAM
     Indication: Withdrawal syndrome
     Dosage: UNK
     Route: 065

REACTIONS (5)
  - Muscle spasticity [Recovered/Resolved]
  - Flushing [Recovered/Resolved]
  - Withdrawal syndrome [Recovered/Resolved]
  - Drug ineffective for unapproved indication [Unknown]
  - Off label use [Unknown]
